FAERS Safety Report 5149850-7 (Version None)
Quarter: 2006Q4

REPORT INFORMATION
  Report Type: 
  Country: None (occurrence: None)
  Receive Date: 20061108
  Receipt Date: 20061027
  Transmission Date: 20070319
  Serious: Yes (Other)
  Sender: FDA-Public Use
  Company Number: 2006131925

PATIENT
  Age: 70 Year
  Sex: Male
  Weight: 99.7913 kg

DRUGS (2)
  1. NORVASC [Suspect]
     Indication: HYPERTENSION
     Dosage: 10 MG (10 MG, 1 IN 1 D)
     Dates: start: 19870101
  2. HYDROCHLOROTHIAZIDE [Suspect]
     Indication: TRANSIENT ISCHAEMIC ATTACK
     Dates: start: 19870101

REACTIONS (1)
  - DIABETES MELLITUS NON-INSULIN-DEPENDENT [None]
